FAERS Safety Report 5499015-4 (Version None)
Quarter: 2007Q4

REPORT INFORMATION
  Report Type: 
  Country: None (occurrence: None)
  Receive Date: 20071026
  Receipt Date: 20070723
  Transmission Date: 20080405
  Serious: No
  Sender: FDA-Public Use
  Company Number: A0651778A

PATIENT
  Age: 47 Year
  Sex: Female

DRUGS (5)
  1. ADVAIR DISKUS 100/50 [Suspect]
     Indication: CHRONIC OBSTRUCTIVE PULMONARY DISEASE
     Dosage: 1PUFF TWICE PER DAY
     Route: 055
     Dates: start: 20070227
  2. FLONASE [Concomitant]
     Dosage: 2SPR TWICE PER DAY
     Route: 045
  3. NEXIUM [Concomitant]
     Dosage: 40MG PER DAY
     Route: 048
  4. ALLEGRA D 24 HOUR [Concomitant]
     Route: 048
  5. HYDROCODONE [Concomitant]
     Dosage: 1TAB TWICE PER DAY
     Route: 048

REACTIONS (3)
  - DRUG INEFFECTIVE [None]
  - DYSPNOEA [None]
  - PHARMACEUTICAL PRODUCT COMPLAINT [None]
